FAERS Safety Report 7845119-8 (Version None)
Quarter: 2011Q4

REPORT INFORMATION
  Report Type: 
  Country: None (occurrence: None)
  Receive Date: 20111025
  Receipt Date: 20111020
  Transmission Date: 20120403
  Serious: Yes (Death)
  Sender: FDA-Public Use
  Company Number: US-CELGENEUS-163-21880-11092042

PATIENT
  Sex: Male

DRUGS (1)
  1. REVLIMID [Suspect]
     Indication: MYELODYSPLASTIC SYNDROME
     Dosage: N/A
     Route: 048

REACTIONS (2)
  - PULMONARY ALVEOLAR HAEMORRHAGE [None]
  - MYELODYSPLASTIC SYNDROME [None]
